FAERS Safety Report 7935632-7 (Version None)
Quarter: 2011Q4

REPORT INFORMATION
  Report Type: 
  Country: None (occurrence: None)
  Receive Date: 20111123
  Receipt Date: 20111116
  Transmission Date: 20120403
  Serious: Yes (Hospitalization)
  Sender: FDA-Public Use
  Company Number: VE-ELI_LILLY_AND_COMPANY-VE201110002618

PATIENT
  Age: 6 Year
  Sex: Male
  Weight: 17 kg

DRUGS (3)
  1. INSULIN NPH                        /01223208/ [Concomitant]
     Indication: TYPE 1 DIABETES MELLITUS
     Dosage: 4 IU, EACH MORNING
     Dates: start: 20110810
  2. INSULIN NPH                        /01223208/ [Concomitant]
     Dosage: 2 IU, EACH EVENING
     Dates: start: 20110810
  3. HUMALOG [Suspect]
     Indication: TYPE 1 DIABETES MELLITUS
     Dosage: 4 IU, TID
     Dates: start: 20110810

REACTIONS (2)
  - HYPOGLYCAEMIA [None]
  - DIABETES MELLITUS [None]
